FAERS Safety Report 9553519 (Version 2)
Quarter: 2013Q4

REPORT INFORMATION
  Report Type: Spontaneous
  Country: US (occurrence: US)
  Receive Date: 20130925
  Receipt Date: 20131023
  Transmission Date: 20140711
  Serious: Yes (Death)
  Sender: FDA-Public Use
  Company Number: US-CELGENEUS-163-21880-13093108

PATIENT
  Age: 54 Year
  Sex: Male

DRUGS (2)
  1. REVLIMID [Suspect]
     Indication: MANTLE CELL LYMPHOMA REFRACTORY
     Dosage: 25 MILLIGRAM
     Route: 048
     Dates: start: 20130615, end: 201309
  2. RITUXAN [Concomitant]
     Indication: MANTLE CELL LYMPHOMA
     Route: 065
     Dates: start: 20130601

REACTIONS (2)
  - Cardiac arrest [Fatal]
  - Mantle cell lymphoma [Fatal]
